FAERS Safety Report 14444166 (Version 1)
Quarter: 2018Q1

REPORT INFORMATION
  Report Type: Spontaneous
  Country: US (occurrence: US)
  Receive Date: 20180125
  Receipt Date: 20180125
  Transmission Date: 20180509
  Serious: No
  Sender: FDA-Public Use
  Company Number: None

PATIENT
  Age: 81 Year
  Sex: Male

DRUGS (5)
  1. TAMSULOSIN [Concomitant]
     Active Substance: TAMSULOSIN
  2. HCTZ [Concomitant]
     Active Substance: HYDROCHLOROTHIAZIDE
  3. ENALAPRIL [Concomitant]
     Active Substance: ENALAPRIL
  4. VYTORIN [Concomitant]
     Active Substance: EZETIMIBE\SIMVASTATIN
  5. NADOLOL. [Suspect]
     Active Substance: NADOLOL
     Route: 048
     Dates: start: 20170812, end: 20180124

REACTIONS (2)
  - Heart rate increased [None]
  - Insomnia [None]

NARRATIVE: CASE EVENT DATE: 20180124
